FAERS Safety Report 5528323-3 (Version None)
Quarter: 2007Q4

REPORT INFORMATION
  Report Type: 
  Country: None (occurrence: None)
  Receive Date: 20071128
  Receipt Date: 20071112
  Transmission Date: 20080405
  Serious: Yes (Hospitalization)
  Sender: FDA-Public Use
  Company Number: US-GILEAD-2007-0013272

PATIENT
  Sex: Female
  Weight: 57 kg

DRUGS (7)
  1. LETAIRIS [Suspect]
     Indication: PULMONARY HYPERTENSION
     Route: 048
     Dates: start: 20070817, end: 20070906
  2. SILDENAFIL CITRATE [Concomitant]
     Dates: start: 20040601
  3. ASPIRIN [Concomitant]
     Dates: end: 20070906
  4. XOPENEX [Concomitant]
  5. AUGMENTIN '250' [Concomitant]
     Dates: start: 20070825, end: 20070905
  6. CECLOR [Concomitant]
     Dates: start: 20070917, end: 20070924
  7. AMOXICILLIN [Concomitant]
     Dates: start: 19950101, end: 20070916

REACTIONS (2)
  - HEADACHE [None]
  - HYPERSENSITIVITY [None]
